FAERS Safety Report 16027146 (Version 1)
Quarter: 2019Q1

REPORT INFORMATION
  Report Type: Spontaneous
  Country: TW (occurrence: TW)
  Receive Date: 20190303
  Receipt Date: 20190303
  Transmission Date: 20190418
  Serious: Yes (Hospitalization)
  Sender: FDA-Public Use
  Company Number: TW-TWI PHARMACEUTICAL, INC-2019SCTW000004

PATIENT

DRUGS (8)
  1. CLOZAPINE. [Suspect]
     Active Substance: CLOZAPINE
     Dosage: 50 MG, QD
     Route: 065
  2. BUPROPION HYDROCHLORIDE. [Suspect]
     Active Substance: BUPROPION HYDROCHLORIDE
     Indication: PERSECUTORY DELUSION
     Dosage: 150 MG
     Route: 065
     Dates: start: 201608
  3. CLOZAPINE. [Suspect]
     Active Substance: CLOZAPINE
     Indication: SCHIZOAFFECTIVE DISORDER
     Dosage: 100 MG, QD
     Route: 065
     Dates: start: 201608
  4. ESTAZOLAM. [Concomitant]
     Active Substance: ESTAZOLAM
     Indication: SCHIZOAFFECTIVE DISORDER
     Dosage: 2 MG, QD
     Route: 065
  5. GLYCOPYRROLATE [GLYCOPYRRONIUM BROMIDE] [Concomitant]
     Indication: SCHIZOAFFECTIVE DISORDER
     Dosage: 2 MG, QD
     Route: 065
  6. LITHIUM. [Concomitant]
     Active Substance: LITHIUM
     Indication: SCHIZOAFFECTIVE DISORDER
     Dosage: 600 MG, QD
     Route: 065
  7. BUPROPION HYDROCHLORIDE. [Suspect]
     Active Substance: BUPROPION HYDROCHLORIDE
     Indication: MAJOR DEPRESSION
     Dosage: 150 MG
     Route: 065
     Dates: start: 201608, end: 201608
  8. CLOZAPINE. [Suspect]
     Active Substance: CLOZAPINE
     Indication: PERSECUTORY DELUSION
     Dosage: 100 MG, QD
     Route: 065
     Dates: start: 201608, end: 201608

REACTIONS (2)
  - Drug interaction [Unknown]
  - Generalised tonic-clonic seizure [Unknown]

NARRATIVE: CASE EVENT DATE: 201608
